FAERS Safety Report 16985633 (Version 1)
Quarter: 2019Q4

REPORT INFORMATION
  Report Type: Spontaneous
  Country: AU (occurrence: AU)
  Receive Date: 20191101
  Receipt Date: 20191101
  Transmission Date: 20200122
  Serious: Yes (Hospitalization, Other)
  Sender: FDA-Public Use
  Company Number: AU-MYLANLABS-2019M1102799

PATIENT
  Age: 53 Year
  Sex: Male

DRUGS (35)
  1. CHOLECALCIFEROL [Concomitant]
     Active Substance: CHOLECALCIFEROL
     Dosage: 25 MICROGRAM, AM
  2. PANTOPRAZOLE [Concomitant]
     Active Substance: PANTOPRAZOLE
     Dosage: 20 MILLIGRAM, AM
  3. BENZTROPINE                        /00012901/ [Concomitant]
     Active Substance: BENZTROPINE
     Dosage: 1 MILLIGRAM, BID
  4. BETALOC                            /00376902/ [Concomitant]
     Active Substance: METOPROLOL TARTRATE
     Dosage: 25 MILLIGRAM, PM
     Route: 048
  5. CLOZARIL [Suspect]
     Active Substance: CLOZAPINE
     Dosage: 1 DOSAGE FORM, PM (TOTAL 162.5MG DAILY)
     Route: 048
     Dates: start: 201312
  6. EPILIM [Suspect]
     Active Substance: VALPROATE SODIUM
     Dosage: 1 GRAM, BID
  7. CHLORPROMAZINE. [Concomitant]
     Active Substance: CHLORPROMAZINE
     Indication: EUPHORIC MOOD
     Dosage: UNK, QD (MAX 25MG)
  8. LORAZEPAM. [Suspect]
     Active Substance: LORAZEPAM
     Indication: AGITATION
     Dosage: UNK, Q3H (1-2MG Q3H, MAX 6MG DAILY)
  9. OLANZAPINE. [Concomitant]
     Active Substance: OLANZAPINE
     Dosage: 7.6 MILLIGRAM, AM
  10. OLANZAPINE. [Concomitant]
     Active Substance: OLANZAPINE
     Dosage: 10 MILLIGRAM, PM
  11. MOVICOL [Concomitant]
     Active Substance: POLYETHYLENE GLYCOL 3350\POTASSIUM CHLORIDE\SODIUM BICARBONATE\SODIUM CHLORIDE
     Dosage: UNK, PRN
  12. FERROUS SULFATE. [Concomitant]
     Active Substance: FERROUS SULFATE
     Dosage: 325 MILLIGRAM, AM
  13. PANTOPRAZOLE [Concomitant]
     Active Substance: PANTOPRAZOLE
     Dosage: 1 DOSAGE FORM, QD
     Route: 048
  14. CLOZARIL [Suspect]
     Active Substance: CLOZAPINE
     Dosage: UNK
     Route: 048
     Dates: start: 20091021
  15. CLOZARIL [Suspect]
     Active Substance: CLOZAPINE
     Dosage: 2.5 DOSAGE FORM, PM (TOTAL 162.5MG DAILY)
     Route: 048
     Dates: start: 201312
  16. EPILIM [Suspect]
     Active Substance: VALPROATE SODIUM
     Indication: PRODUCT USED FOR UNKNOWN INDICATION
     Dosage: UNK
  17. LORAZEPAM. [Suspect]
     Active Substance: LORAZEPAM
     Indication: EUPHORIC MOOD
  18. BENZTROPINE                        /00012901/ [Concomitant]
     Active Substance: BENZTROPINE
     Indication: EXTRAPYRAMIDAL DISORDER
     Dosage: 0.5 MILLIGRAM, BID
  19. BETALOC                            /00376902/ [Concomitant]
     Active Substance: METOPROLOL TARTRATE
     Dosage: 50 MILLIGRAM, AM
     Route: 048
  20. LORAZEPAM. [Suspect]
     Active Substance: LORAZEPAM
     Indication: EUPHORIC MOOD
     Dosage: 1 DOSAGE FORM, QID
     Route: 048
  21. EUTROXSIG [Concomitant]
     Active Substance: LEVOTHYROXINE SODIUM
     Dosage: 1 DOSAGE FORM, AM (TOTAL 125MCG DAILY)
     Route: 048
  22. ASPIRIN                            /00002701/ [Concomitant]
     Active Substance: ASPIRIN
     Dosage: 100 MILLIGRAM, AM
  23. EPILIM [Suspect]
     Active Substance: VALPROATE SODIUM
     Dosage: 1.8 GRAM, BID
  24. CLONAZEPAM. [Concomitant]
     Active Substance: CLONAZEPAM
     Dosage: 0.5 MILLIGRAM, BID
  25. EUTROXSIG [Concomitant]
     Active Substance: LEVOTHYROXINE SODIUM
     Dosage: 0.5 DOSAGE FORM, AM (TOTAL 125MCG DAILY)
     Route: 048
  26. CHLORPROMAZINE. [Concomitant]
     Active Substance: CHLORPROMAZINE
     Indication: AGITATION
     Dosage: UNK, BID (12.5-25MG)
  27. ARIPIPRAZOLE. [Concomitant]
     Active Substance: ARIPIPRAZOLE
     Dosage: 40 MILLIGRAM, AM
  28. MOVICOL [Concomitant]
     Active Substance: POLYETHYLENE GLYCOL 3350\POTASSIUM CHLORIDE\SODIUM BICARBONATE\SODIUM CHLORIDE
     Dosage: UNK, BID (ONE SACHET)
  29. COLOXYL WITH SENNA [Concomitant]
     Active Substance: DOCUSATE SODIUM\SENNOSIDES A AND B
     Dosage: UNK UNK, BID (TWO)
  30. PARACETAMOL [Concomitant]
     Active Substance: ACETAMINOPHEN
     Dosage: UNK, PRN
  31. CLOZARIL [Suspect]
     Active Substance: CLOZAPINE
     Indication: SCHIZOPHRENIA
     Dosage: UNK
     Route: 048
     Dates: start: 20091021
  32. LORAZEPAM. [Suspect]
     Active Substance: LORAZEPAM
     Indication: AGITATION
     Dosage: 1 DOSAGE FORM, QID
     Route: 048
  33. HALOPERIDOL. [Concomitant]
     Active Substance: HALOPERIDOL
     Dosage: 10 MILLIGRAM, BID
  34. LAMOTRIGINE. [Concomitant]
     Active Substance: LAMOTRIGINE
     Dosage: 250 MILLIGRAM, PM
  35. BENZTROPINE                        /00012901/ [Concomitant]
     Active Substance: BENZTROPINE
     Dosage: UNK (MAX 2MG DAILY)

REACTIONS (15)
  - Catatonia [Unknown]
  - Renal impairment [Unknown]
  - Blood chloride increased [Not Recovered/Not Resolved]
  - Blood bicarbonate increased [Not Recovered/Not Resolved]
  - Blood calcium decreased [Unknown]
  - Pneumonia aspiration [Unknown]
  - Lower respiratory tract infection [Recovering/Resolving]
  - Blood phosphorus decreased [Unknown]
  - Neutropenia [Recovering/Resolving]
  - Blood sodium increased [Not Recovered/Not Resolved]
  - Blood albumin decreased [Recovering/Resolving]
  - Toxicity to various agents [Unknown]
  - Sedation [Unknown]
  - Loss of consciousness [Recovering/Resolving]
  - Antipsychotic drug level increased [Unknown]

NARRATIVE: CASE EVENT DATE: 2013
